FAERS Safety Report 4806721-0 (Version None)
Quarter: 2005Q4

REPORT INFORMATION
  Report Type: 
  Country: None (occurrence: None)
  Receive Date: 20051019
  Receipt Date: 20051007
  Transmission Date: 20060501
  Serious: Yes (Hospitalization, Other)
  Sender: FDA-Public Use
  Company Number: KII-2005-0019012

PATIENT
  Age: 43 Year
  Sex: Female

DRUGS (5)
  1. MORPHINE SULFATE [Suspect]
     Dosage: ORAL
     Route: 048
  2. METHADONE HCL [Suspect]
     Dosage: ORAL
     Route: 048
  3. METHAMPETAMINE [Suspect]
     Dosage: ORAL
     Route: 048
  4. BENZODIAZEPINE DERIVATIVES [Suspect]
  5. ASPIRIN [Suspect]

REACTIONS (10)
  - BLOOD PRESSURE SYSTOLIC INCREASED [None]
  - CYANOSIS [None]
  - DEPRESSED LEVEL OF CONSCIOUSNESS [None]
  - INTENTIONAL DRUG MISUSE [None]
  - MULTIPLE DRUG OVERDOSE [None]
  - OXYGEN SATURATION DECREASED [None]
  - SEDATION [None]
  - SOMNOLENCE [None]
  - SUICIDE ATTEMPT [None]
  - VOMITING [None]
